FAERS Safety Report 7304568-7 (Version None)
Quarter: 2011Q1

REPORT INFORMATION
  Report Type: 
  Country: None (occurrence: None)
  Receive Date: 20110222
  Receipt Date: 20101217
  Transmission Date: 20110831
  Serious: Yes (Hospitalization, Other)
  Sender: FDA-Public Use
  Company Number: PHHY2010FI78811

PATIENT
  Sex: Female

DRUGS (16)
  1. MAREVAN FORTE [Concomitant]
     Dosage: UNK
  2. RETAFER [Concomitant]
  3. MIACALCIN [Concomitant]
  4. PARANOVA [Concomitant]
     Dosage: 200IU/DOS NASAL SPRAY
  5. KALCIPOS-D MITE [Concomitant]
  6. PANTOPRAZOLE [Concomitant]
  7. METOHEXAL [Concomitant]
  8. FURESIS [Concomitant]
  9. ORMOX [Concomitant]
  10. HIPEKSAL [Concomitant]
  11. KALEORID [Concomitant]
  12. PANADOL [Concomitant]
  13. PREDNISOLONE [Concomitant]
  14. ACLASTA [Suspect]
     Indication: OSTEOPOROSIS
     Dosage: 5 MG
     Dates: start: 20101109
  15. LANTUS [Concomitant]
     Dosage: 100 IU/ML INJECTIONS
  16. ARICEPT [Concomitant]

REACTIONS (7)
  - TREMOR [None]
  - OCULAR HYPERAEMIA [None]
  - VOMITING [None]
  - NAUSEA [None]
  - PYREXIA [None]
  - NASAL CONGESTION [None]
  - ATRIAL FIBRILLATION [None]
